FAERS Safety Report 23100388 (Version 1)
Quarter: 2023Q4

REPORT INFORMATION
  Report Type: Spontaneous
  Country: IE (occurrence: US)
  Receive Date: 20231024
  Receipt Date: 20231024
  Transmission Date: 20240110
  Serious: Yes (Other)
  Sender: FDA-Public Use
  Company Number: IE-BAYER-2023A151365

PATIENT
  Age: 52 Year
  Sex: Female
  Weight: 86.168 kg

DRUGS (20)
  1. STIVARGA [Suspect]
     Active Substance: REGORAFENIB
     Dosage: 80 MG, QD FOR 7 DAYS
     Dates: end: 20230804
  2. STIVARGA [Suspect]
     Active Substance: REGORAFENIB
     Dosage: 80 MG, QD
     Dates: start: 20230901
  3. STIVARGA [Suspect]
     Active Substance: REGORAFENIB
     Dosage: 120 MG, QD
     Dates: start: 20230907
  4. LONSURF [Suspect]
     Active Substance: TIPIRACIL HYDROCHLORIDE\TRIFLURIDINE
     Indication: Colon cancer
     Dosage: 75 MG, BID ON DAYS 1 THROUGH 5 AND 8 THROUGH 12 OF
     Dates: start: 20230217
  5. XTAMPZA ER [Concomitant]
     Active Substance: OXYCODONE
     Dosage: UNK
  6. SPR [Concomitant]
     Dosage: UNK
  7. PROCARDIA [Concomitant]
     Active Substance: NIFEDIPINE
     Dosage: UNK
  8. VITAMIN D3 [Concomitant]
     Active Substance: CHOLECALCIFEROL
     Dosage: UNK
  9. TOPROL XL [Concomitant]
     Active Substance: METOPROLOL SUCCINATE
     Dosage: UNK
  10. PROTONIX [Concomitant]
     Active Substance: PANTOPRAZOLE SODIUM
     Dosage: UNK
  11. CYTOMEL [Concomitant]
     Active Substance: LIOTHYRONINE SODIUM
     Dosage: UNK
  12. SYNTHROID [Concomitant]
     Active Substance: LEVOTHYROXINE SODIUM
     Dosage: UNK
  13. AMBIEN [Concomitant]
     Active Substance: ZOLPIDEM TARTRATE
     Dosage: UNK
  14. METHOCARBAMOL [Concomitant]
     Active Substance: METHOCARBAMOL
     Dosage: UNK
  15. GAS-X MAX STRENGTH [Concomitant]
     Dosage: UNK
  16. DOCUSATE SODIUM\SENNOSIDES A AND B [Concomitant]
     Active Substance: DOCUSATE SODIUM\SENNOSIDES A AND B
     Dosage: UNK
  17. UDENYCA [Concomitant]
     Active Substance: PEGFILGRASTIM-CBQV
     Dosage: UNK
  18. OXALIPLATIN [Concomitant]
     Active Substance: OXALIPLATIN
     Dosage: UNK
  19. PREDNISONE [Concomitant]
     Active Substance: PREDNISONE
     Dosage: UNK
  20. TRAMADOL HCL [Concomitant]
     Active Substance: TRAMADOL HYDROCHLORIDE
     Dosage: UNK

REACTIONS (4)
  - Pain [None]
  - Mobility decreased [None]
  - Blood potassium decreased [None]
  - Product dose omission issue [None]
